FAERS Safety Report 5197369-X (Version None)
Quarter: 2006Q4

REPORT INFORMATION
  Report Type: 
  Country: None (occurrence: None)
  Receive Date: 20061228
  Receipt Date: 20061219
  Transmission Date: 20070319
  Serious: Yes (Other)
  Sender: FDA-Public Use
  Company Number: 233219

PATIENT
  Age: 10 Year
  Sex: Female
  Weight: 27.6 kg

DRUGS (2)
  1. NUTROPIN AQ [Suspect]
     Indication: GROWTH HORMONE DEFICIENCY
     Dosage: 2 MG, 7/WEEK, SUBCUTANEOUS
     Route: 058
     Dates: start: 20060823, end: 20061009
  2. DDAVP (DESMOPRESSIN ACETATE) [Concomitant]

REACTIONS (2)
  - HEADACHE [None]
  - SWELLING FACE [None]
